FAERS Safety Report 8241875-8 (Version None)
Quarter: 2012Q1

REPORT INFORMATION
  Report Type: 
  Country: None (occurrence: None)
  Receive Date: 20120328
  Receipt Date: 20120319
  Transmission Date: 20120608
  Serious: Yes (Other)
  Sender: FDA-Public Use
  Company Number: US-MYLANLABS-2012S1005910

PATIENT
  Age: 48 Year
  Sex: Female

DRUGS (8)
  1. AMNESTEEM [Suspect]
     Route: 048
     Dates: start: 20120101, end: 20120301
  2. AMNESTEEM [Suspect]
     Route: 048
     Dates: start: 20120101, end: 20120311
  3. AMNESTEEM [Suspect]
     Indication: ACNE CYSTIC
     Route: 048
     Dates: start: 20120101, end: 20120301
  4. XANAX [Concomitant]
     Indication: ANXIETY
  5. LANSOPRAZOLE [Concomitant]
     Indication: GASTROOESOPHAGEAL REFLUX DISEASE
  6. SINGULAIR [Concomitant]
     Indication: HYPERSENSITIVITY
  7. TOPIRAMATE [Suspect]
     Indication: MIGRAINE
     Route: 048
     Dates: end: 20120312
  8. CARDIZEM [Concomitant]
     Indication: MIGRAINE

REACTIONS (8)
  - SUICIDAL IDEATION [None]
  - LIP DRY [None]
  - PANIC ATTACK [None]
  - DRY SKIN [None]
  - NASOPHARYNGITIS [None]
  - PARANOIA [None]
  - VERTIGO [None]
  - DIZZINESS [None]
